FAERS Safety Report 5828928-6 (Version None)
Quarter: 2008Q3

REPORT INFORMATION
  Report Type: 
  Country: None (occurrence: None)
  Receive Date: 20080731
  Receipt Date: 20080722
  Transmission Date: 20090109
  Serious: Yes (Life-Threatening)
  Sender: FDA-Public Use
  Company Number: CN-ROCHE-576866

PATIENT
  Sex: Female
  Weight: 50 kg

DRUGS (2)
  1. XELODA [Suspect]
     Indication: BREAST CANCER
     Route: 048
     Dates: start: 20080710, end: 20080718
  2. DOCETAXEL [Concomitant]
     Indication: CHEMOTHERAPY
     Dosage: TRADE NAME REPORTED AS AISU
     Route: 042
     Dates: start: 20080710, end: 20080710

REACTIONS (1)
  - COMA [None]
